FAERS Safety Report 8375192-2 (Version None)
Quarter: 2012Q2

REPORT INFORMATION
  Report Type: 
  Country: None (occurrence: None)
  Receive Date: 20120521
  Receipt Date: 20120516
  Transmission Date: 20120825
  Serious: Yes (Other)
  Sender: FDA-Public Use
  Company Number: US-AMGEN-USASP2012031379

PATIENT
  Age: 82 Year
  Sex: Female

DRUGS (3)
  1. CALCIUM [Concomitant]
     Dosage: UNK
  2. PROLIA [Suspect]
     Indication: OSTEOPOROSIS POSTMENOPAUSAL
     Dates: start: 20110101
  3. VITAMIN D [Concomitant]

REACTIONS (6)
  - HYPERCALCIURIA [None]
  - URINE CALCIUM/CREATININE RATIO INCREASED [None]
  - HYPERCALCAEMIA [None]
  - HYPERPARATHYROIDISM SECONDARY [None]
  - THYROID DISORDER [None]
  - BLOOD 1,25-DIHYDROXYCHOLECALCIFEROL INCREASED [None]
